FAERS Safety Report 7801567-3 (Version None)
Quarter: 2011Q4

REPORT INFORMATION
  Report Type: 
  Country: None (occurrence: None)
  Receive Date: 20111007
  Receipt Date: 20110930
  Transmission Date: 20120403
  Serious: Yes (Other)
  Sender: FDA-Public Use
  Company Number: NL-ABBOTT-11P-114-0860085-00

PATIENT
  Sex: Female

DRUGS (1)
  1. LEUPRORELINE (LUCRIN) 11.25 MG [Suspect]
     Indication: BREAST CANCER
     Route: 058
     Dates: start: 20110705

REACTIONS (3)
  - METASTASES TO LUNG [None]
  - HOT FLUSH [None]
  - BINGE EATING [None]
